FAERS Safety Report 23288148 (Version 1)
Quarter: 2023Q4

REPORT INFORMATION
  Report Type: Spontaneous
  Country: US (occurrence: US)
  Receive Date: 20231212
  Receipt Date: 20231212
  Transmission Date: 20240110
  Serious: Yes (Other)
  Sender: FDA-Public Use
  Company Number: US-PFIZER INC-PV202300199463

PATIENT

DRUGS (2)
  1. ENCORAFENIB [Suspect]
     Active Substance: ENCORAFENIB
     Dosage: 3 DAYS ON AND 4 DAYS OFF
  2. BINIMETINIB [Suspect]
     Active Substance: BINIMETINIB
     Dosage: 3 DAYS ON AND 4 DAYS OFF

REACTIONS (1)
  - Large intestinal ulcer [Recovering/Resolving]
